FAERS Safety Report 8522774-0 (Version None)
Quarter: 2012Q3

REPORT INFORMATION
  Report Type: 
  Country: None (occurrence: None)
  Receive Date: 20120719
  Receipt Date: 20120718
  Transmission Date: 20120928
  Serious: Yes (Death)
  Sender: FDA-Public Use
  Company Number: JP-ABBOTT-12P-087-0957788-00

PATIENT
  Age: 20 Year
  Sex: Female

DRUGS (1)
  1. LIPACREON [Suspect]
     Indication: CYSTIC FIBROSIS PANCREATIC
     Route: 048

REACTIONS (1)
  - DEATH [None]
